FAERS Safety Report 9130172 (Version 1)
Quarter: 2013Q1

REPORT INFORMATION
  Report Type: Spontaneous
  Country: US (occurrence: US)
  Receive Date: 20130228
  Receipt Date: 20130228
  Transmission Date: 20140127
  Serious: Yes (Other)
  Sender: FDA-Public Use
  Company Number: US-PFIZER INC-2013060984

PATIENT
  Sex: Male

DRUGS (1)
  1. PRIMATENE [Suspect]
     Dosage: UNK

REACTIONS (2)
  - Intentional overdose [Unknown]
  - Drug dependence [Unknown]
